FAERS Safety Report 25904287 (Version 1)
Quarter: 2025Q4

REPORT INFORMATION
  Report Type: Spontaneous
  Country: US (occurrence: US)
  Receive Date: 20251010
  Receipt Date: 20251010
  Transmission Date: 20260118
  Serious: Yes (Hospitalization)
  Sender: RIGEL PHARMACEUTICALS
  Company Number: US-RIGEL Pharmaceutics, INC- 20251000033

PATIENT
  Sex: Male

DRUGS (1)
  1. TAVALISSE [Suspect]
     Active Substance: FOSTAMATINIB
     Indication: Immune thrombocytopenia
     Dosage: 150MG, BID
     Route: 048
     Dates: start: 20250709

REACTIONS (1)
  - Haemoglobin abnormal [Unknown]

NARRATIVE: CASE EVENT DATE: 20250101
